FAERS Safety Report 8270193 (Version 3)
Quarter: 2012Q4

REPORT INFORMATION
  Report Type: Report from Study
  Country: SG (occurrence: SG)
  Receive Date: 20111201
  Receipt Date: 20121213
  Transmission Date: 20130627
  Serious: Yes (Hospitalization, Other)
  Sender: FDA-Public Use
  Company Number: PHHO2011SG019021

PATIENT
  Age: 46 Year
  Sex: Male
  Weight: 76 kg

DRUGS (3)
  1. AMN107 [Suspect]
     Indication: CHRONIC MYELOID LEUKAEMIA
     Dosage: 400 mg, BID
     Route: 048
     Dates: start: 20080909, end: 20111114
  2. AMN107 [Suspect]
     Dosage: 400 mg, BID
     Route: 048
     Dates: start: 20111123
  3. ANTIHYPERTENSIVES [Concomitant]

REACTIONS (1)
  - Coronary artery disease [Recovered/Resolved]
